FAERS Safety Report 18106034 (Version 2)
Quarter: 2020Q3

REPORT INFORMATION
  Report Type: Spontaneous
  Country: DE (occurrence: DE)
  Receive Date: 20200803
  Receipt Date: 20200817
  Transmission Date: 20201103
  Serious: Yes (Other)
  Sender: FDA-Public Use
  Company Number: NVSC2020DE190613

PATIENT
  Sex: Male
  Weight: 105 kg

DRUGS (40)
  1. VALSARTAN. [Suspect]
     Active Substance: VALSARTAN
     Dosage: 320 MG, QD (ABZ)
     Route: 065
     Dates: start: 20170421
  2. VALSACOR [Suspect]
     Active Substance: VALSARTAN
     Dosage: 320 MG, QD (TAD PHARMA)
     Route: 065
     Dates: start: 20180312
  3. CIPROFLOXACIN AL [Concomitant]
     Active Substance: CIPROFLOXACIN
     Indication: PRODUCT USED FOR UNKNOWN INDICATION
     Dosage: 500 MG
     Route: 048
  4. METOPROLOLSUCCINAT AL [Concomitant]
     Active Substance: METOPROLOL SUCCINATE
     Dosage: UNK UNK, QD
     Route: 048
  5. IBUFLAM [Concomitant]
     Indication: PRODUCT USED FOR UNKNOWN INDICATION
     Dosage: 800 MG, PRN
     Route: 048
  6. CANDESARTAN 1 A PHARMA [Concomitant]
     Active Substance: CANDESARTAN
     Indication: PRODUCT USED FOR UNKNOWN INDICATION
     Dosage: 32 MG, QD
     Route: 048
  7. AMLODIPIN [Concomitant]
     Active Substance: AMLODIPINE BESYLATE
     Indication: PRODUCT USED FOR UNKNOWN INDICATION
     Dosage: 5 MG, QD
     Route: 048
  8. VALSARTAN. [Suspect]
     Active Substance: VALSARTAN
     Indication: PRODUCT USED FOR UNKNOWN INDICATION
     Dosage: 320 MG, QD  (ABZ)
     Route: 065
     Dates: start: 20150610
  9. VALSACOR [Suspect]
     Active Substance: VALSARTAN
     Dosage: 320 MG, QD (TAD PHARMA)
     Route: 065
     Dates: start: 20171101
  10. VALSARTAN DURA [Suspect]
     Active Substance: VALSARTAN
     Indication: PRODUCT USED FOR UNKNOWN INDICATION
     Dosage: 320 MG, QD
     Route: 065
     Dates: start: 2013
  11. VALSARTAN DURA [Suspect]
     Active Substance: VALSARTAN
     Dosage: 320 MG, QD
     Route: 065
     Dates: start: 20160413
  12. HCT BETA [Concomitant]
     Active Substance: HYDROCHLOROTHIAZIDE
     Indication: PRODUCT USED FOR UNKNOWN INDICATION
     Dosage: 25 MG, QD
     Route: 048
  13. METOPROLOLSUCCINAT DURA [Concomitant]
     Active Substance: METOPROLOL SUCCINATE
     Indication: PRODUCT USED FOR UNKNOWN INDICATION
     Dosage: 47.5 MG, QD (TABLET, DELAYED RELEASE)
     Route: 048
  14. METOHEXAL SUCC [Concomitant]
     Active Substance: METOPROLOL SUCCINATE
     Dosage: UNK (1?0?0)
     Route: 048
  15. NOVAMINSULFON LICHTENSTEIN [Concomitant]
     Active Substance: METAMIZOLE SODIUM
     Indication: PRODUCT USED FOR UNKNOWN INDICATION
     Dosage: 500 MG, PRN
     Route: 048
  16. VALSACOR [Suspect]
     Active Substance: VALSARTAN
     Dosage: 320 MG, QD (TAD PHARMA)
     Route: 065
     Dates: start: 20181011
  17. VALSARTAN DURA [Suspect]
     Active Substance: VALSARTAN
     Dosage: 320 MG, QD
     Route: 065
     Dates: start: 20160107
  18. AMOXI 1A PHARMA [Concomitant]
     Active Substance: AMOXICILLIN
     Indication: PRODUCT USED FOR UNKNOWN INDICATION
     Dosage: 1000 OT
     Route: 048
  19. CIPROFLOXACIN AL [Concomitant]
     Active Substance: CIPROFLOXACIN
     Dosage: UNK
     Route: 048
  20. LEVOFLOXACIN 1 A PHARMA [Concomitant]
     Active Substance: LEVOFLOXACIN
     Dosage: UNK
     Route: 048
  21. VALSACOR [Suspect]
     Active Substance: VALSARTAN
     Dosage: 320 MG, QD (TAD PHARMA)
     Route: 065
     Dates: start: 20170714
  22. VALSACOR [Suspect]
     Active Substance: VALSARTAN
     Dosage: 320 MG, QD (TAD PHARMA)
     Route: 065
     Dates: start: 20190312
  23. VALSARTAN DURA [Suspect]
     Active Substance: VALSARTAN
     Dosage: 320 MG, QD
     Route: 065
     Dates: start: 20150327
  24. HCT 1 A PHARMA [Concomitant]
     Active Substance: HYDROCHLOROTHIAZIDE
     Indication: PRODUCT USED FOR UNKNOWN INDICATION
     Dosage: 25 MG, QD
     Route: 048
  25. HCT 1 A PHARMA [Concomitant]
     Active Substance: HYDROCHLOROTHIAZIDE
     Dosage: UNK, QD
     Route: 048
  26. HCT HEXAL [Concomitant]
     Active Substance: HYDROCHLOROTHIAZIDE
     Dosage: UNK, QD
     Route: 048
  27. VALSARTAN. [Suspect]
     Active Substance: VALSARTAN
     Dosage: 320 MG, QD  (ABZ)
     Route: 065
     Dates: start: 20170103
  28. HCT BETA [Concomitant]
     Active Substance: HYDROCHLOROTHIAZIDE
     Dosage: UNK
     Route: 048
  29. HCT DEXCEL [Concomitant]
     Active Substance: HYDROCHLOROTHIAZIDE
     Indication: PRODUCT USED FOR UNKNOWN INDICATION
     Dosage: UNK UNK, QD
     Route: 048
  30. VALSACOR [Suspect]
     Active Substance: VALSARTAN
     Dosage: 320 MG, QD (TAD PHARMA)
     Route: 065
     Dates: start: 20180713
  31. VALSACOR [Suspect]
     Active Substance: VALSARTAN
     Dosage: 320 MG, QD (TAD PHARMA)
     Route: 065
     Dates: start: 20181105
  32. METOHEXAL SUCC [Concomitant]
     Active Substance: METOPROLOL SUCCINATE
     Indication: PRODUCT USED FOR UNKNOWN INDICATION
     Dosage: 47.5 MG, QD (TABLET, DELAYED RELEASE)
     Route: 048
  33. NOVAMINSULFON LICHTENSTEIN [Concomitant]
     Active Substance: METAMIZOLE SODIUM
     Dosage: UNK, (AS NEEDED)
     Route: 048
  34. HCT HEXAL [Concomitant]
     Active Substance: HYDROCHLOROTHIAZIDE
     Indication: PRODUCT USED FOR UNKNOWN INDICATION
     Dosage: 25 MG, QD
     Route: 048
  35. VALSACOR [Suspect]
     Active Substance: VALSARTAN
     Indication: PRODUCT USED FOR UNKNOWN INDICATION
     Dosage: 320 MG, QD  (TAD PHARMA)
     Route: 065
     Dates: start: 20160711
  36. VALSARTAN DURA [Suspect]
     Active Substance: VALSARTAN
     Dosage: 320 MG, QD
     Route: 065
     Dates: start: 20150921
  37. DUODART [Concomitant]
     Active Substance: DUTASTERIDE\TAMSULOSIN
     Indication: PRODUCT USED FOR UNKNOWN INDICATION
     Dosage: UNK
     Route: 048
  38. METOPROLOLSUCCINAT AL [Concomitant]
     Active Substance: METOPROLOL SUCCINATE
     Indication: PRODUCT USED FOR UNKNOWN INDICATION
     Dosage: 47.5 MG, QD (TABLET, DELAYED RELEASE)
     Route: 048
  39. LEVOFLOXACIN 1 A PHARMA [Concomitant]
     Active Substance: LEVOFLOXACIN
     Indication: PRODUCT USED FOR UNKNOWN INDICATION
     Dosage: 500 MG
     Route: 048
  40. CANDESARTAN 1 A PHARMA [Concomitant]
     Active Substance: CANDESARTAN
     Dosage: UNK UNK, QD
     Route: 048

REACTIONS (7)
  - Fear of disease [Not Recovered/Not Resolved]
  - Impaired quality of life [Not Recovered/Not Resolved]
  - Sleep disorder [Not Recovered/Not Resolved]
  - Mental impairment [Not Recovered/Not Resolved]
  - Hypertension [Unknown]
  - Benign prostatic hyperplasia [Unknown]
  - Disturbance in attention [Not Recovered/Not Resolved]

NARRATIVE: CASE EVENT DATE: 201901
